FAERS Safety Report 21997064 (Version 1)
Quarter: 2023Q1

REPORT INFORMATION
  Report Type: Spontaneous
  Country: JP (occurrence: None)
  Receive Date: 20230215
  Receipt Date: 20230215
  Transmission Date: 20230418
  Serious: Yes (Other)
  Sender: FDA-Public Use
  Company Number: 2023A035231

PATIENT

DRUGS (3)
  1. IMFINZI [Suspect]
     Active Substance: DURVALUMAB
     Indication: Bile duct cancer
     Route: 041
  2. GEMCITABINE [Suspect]
     Active Substance: GEMCITABINE
     Indication: Bile duct cancer
     Route: 041
  3. CISPLATIN [Suspect]
     Active Substance: CISPLATIN
     Indication: Bile duct cancer
     Dosage: DOSE UNKNOWN
     Route: 065

REACTIONS (1)
  - Myelosuppression [Unknown]
